FAERS Safety Report 10025772 (Version 1)
Quarter: 2014Q1

REPORT INFORMATION
  Report Type: Spontaneous
  Country: AT (occurrence: AT)
  Receive Date: 20140320
  Receipt Date: 20140320
  Transmission Date: 20141002
  Serious: Yes (Other)
  Sender: FDA-Public Use
  Company Number: AT-B.I. PHARMACEUTICALS,INC./RIDGEFIELD-2014-BI-11932GD

PATIENT
  Age: 10 Year
  Sex: Male
  Weight: 40 kg

DRUGS (10)
  1. IPRATROPIUMBROMID [Suspect]
     Indication: ASTHMA
     Route: 055
  2. PREDNISOLONE [Suspect]
     Indication: ASTHMA
     Dosage: 2 MG/KG
     Route: 042
  3. TERBUTALINE [Suspect]
     Indication: ASTHMA
     Dosage: 0.02 MG/KG/H
     Route: 042
  4. MAGNESIUM SULPHATE [Suspect]
     Indication: ASTHMA
     Dosage: 8 G
     Route: 042
  5. SALBUTAMOL [Suspect]
     Indication: ASTHMA
     Route: 055
  6. FENTANYL [Suspect]
     Indication: SEDATIVE THERAPY
     Dosage: 4 MCG/KG/H
     Route: 065
  7. MIDAZOLAM [Suspect]
     Indication: SEDATIVE THERAPY
     Dosage: 0.5 MG/KG/H
     Route: 065
  8. KETAMINE [Suspect]
     Indication: SEDATIVE THERAPY
     Dosage: 2 MG/KG/H
     Route: 042
  9. AMOXICILLIN/CLAVULANIC ACID [Concomitant]
     Indication: ANTIBIOTIC THERAPY
     Dosage: 4.5 G
     Route: 065
  10. CLARITHROMYCIN [Concomitant]
     Indication: ANTIBIOTIC THERAPY
     Dosage: 600 MG
     Route: 065

REACTIONS (5)
  - Respiratory acidosis [Recovered/Resolved]
  - Hypercapnia [Recovered/Resolved]
  - Pneumomediastinum [Recovered/Resolved]
  - Pupil fixed [Recovered/Resolved]
  - Drug ineffective [Unknown]
